FAERS Safety Report 26054992 (Version 1)
Quarter: 2025Q4

REPORT INFORMATION
  Report Type: Report from Study
  Country: EU (occurrence: EU)
  Receive Date: 20251117
  Receipt Date: 20251117
  Transmission Date: 20260118
  Serious: Yes (Death, Life-Threatening, Other)
  Sender: PFIZER
  Company Number: EU-PFIZER INC-PV202500134413

PATIENT
  Sex: Female
  Weight: 2.4 kg

DRUGS (2)
  1. CARBOPLATIN [Suspect]
     Active Substance: CARBOPLATIN
     Indication: Neonatal neuroblastoma
     Dosage: 6.6 MG/KG, CYCLIC (DAYS 1-3) COURSE 2
  2. ETOPOSIDE [Suspect]
     Active Substance: ETOPOSIDE
     Indication: Neonatal neuroblastoma
     Dosage: 5 MG/KG, CYCLIC (DAYS 1-3) COURSE 2

REACTIONS (9)
  - Ascites [Fatal]
  - Neonatal hepatomegaly [Fatal]
  - Neutropenia [Unknown]
  - Thrombocytopenia [Unknown]
  - Haematological infection [Unknown]
  - Sepsis neonatal [Unknown]
  - Staphylococcal infection [Unknown]
  - Adrenal haematoma [Unknown]
  - Hepatic mass [Unknown]
